FAERS Safety Report 9331632 (Version 1)
Quarter: 2013Q2

REPORT INFORMATION
  Report Type: Spontaneous
  Country: FI (occurrence: FI)
  Receive Date: 20130605
  Receipt Date: 20130605
  Transmission Date: 20140414
  Serious: Yes (Other)
  Sender: FDA-Public Use
  Company Number: FI-BRISTOL-MYERS SQUIBB COMPANY-18954131

PATIENT
  Age: 72 Year
  Sex: Female

DRUGS (1)
  1. HYDREA CAPS 500 MG [Suspect]
     Route: 048

REACTIONS (4)
  - Colon cancer [Unknown]
  - Alopecia [Unknown]
  - Nail injury [Unknown]
  - Off label use [Unknown]
